FAERS Safety Report 4566134-6 (Version None)
Quarter: 2005Q1

REPORT INFORMATION
  Report Type: 
  Country: None (occurrence: None)
  Receive Date: 20050120
  Receipt Date: 20050120
  Transmission Date: 20050727
  Serious: No
  Sender: FDA-Public Use
  Company Number: None

PATIENT
  Sex: Female

DRUGS (1)
  1. TRAZODONE [Suspect]
     Indication: FIBROMYALGIA
     Dosage: 150 MG QD PO
     Route: 048

REACTIONS (2)
  - ASTHENIA [None]
  - PAIN [None]
